FAERS Safety Report 15253777 (Version 1)
Quarter: 2018Q3

REPORT INFORMATION
  Report Type: Spontaneous
  Country: US (occurrence: US)
  Receive Date: 20180808
  Receipt Date: 20180808
  Transmission Date: 20181010
  Serious: Yes (Death, Hospitalization, Other)
  Sender: FDA-Public Use
  Company Number: US-DRREDDYS-USA/USA/18/0102947

PATIENT
  Age: 9 Year
  Sex: Male

DRUGS (6)
  1. DOXORUBICIN HYDROCHLORIDE LIPOSOME INJECTION 20 MG/10 ML (2 MG/ML) AND [Suspect]
     Active Substance: DOXORUBICIN HYDROCHLORIDE
     Indication: NEOPLASM MALIGNANT
     Route: 065
  2. VINCRISTINE [Suspect]
     Active Substance: VINCRISTINE
     Indication: NEOPLASM MALIGNANT
     Route: 065
  3. CYCLOPHOSPHAMIDE. [Suspect]
     Active Substance: CYCLOPHOSPHAMIDE
     Indication: NEOPLASM MALIGNANT
     Route: 065
  4. CARBOPLATIN. [Suspect]
     Active Substance: CARBOPLATIN
     Indication: NEOPLASM MALIGNANT
     Route: 065
  5. IFOSFAMIDE. [Suspect]
     Active Substance: IFOSFAMIDE
     Indication: NEOPLASM MALIGNANT
     Route: 065
  6. ETOPOSIDE. [Suspect]
     Active Substance: ETOPOSIDE
     Indication: NEOPLASM MALIGNANT
     Route: 065

REACTIONS (9)
  - Pancytopenia [Unknown]
  - Toxicity to various agents [Unknown]
  - Neoplasm recurrence [Fatal]
  - Nausea [Unknown]
  - Therapeutic response decreased [Unknown]
  - Fatigue [Unknown]
  - Vomiting [Unknown]
  - Cystitis haemorrhagic [Unknown]
  - Fanconi syndrome [Unknown]
